FAERS Safety Report 8761550 (Version 5)
Quarter: 2013Q2

REPORT INFORMATION
  Report Type: Spontaneous
  Country: FI (occurrence: FI)
  Receive Date: 20120828
  Receipt Date: 20130501
  Transmission Date: 20140414
  Serious: Yes (Hospitalization)
  Sender: FDA-Public Use
  Company Number: FI-BAXTER-2012BAX015092

PATIENT
  Age: 1 Year
  Sex: Male

DRUGS (6)
  1. ADVATE 250 IU INJEKTIOKUIVA-AINE JA LIUOTIN, LIUOSTA VARTEN [Suspect]
     Indication: FACTOR VIII DEFICIENCY
     Route: 042
     Dates: start: 20120806, end: 20120806
  2. ADVATE 250 IU INJEKTIOKUIVA-AINE JA LIUOTIN, LIUOSTA VARTEN [Suspect]
     Indication: PROPHYLAXIS
     Route: 042
  3. ADVATE 250 IU INJEKTIOKUIVA-AINE JA LIUOTIN, LIUOSTA VARTEN [Suspect]
     Route: 042
     Dates: start: 201206, end: 20120807
  4. ADVATE 250 IU INJEKTIOKUIVA-AINE JA LIUOTIN, LIUOSTA VARTEN [Suspect]
     Route: 042
     Dates: start: 20120626, end: 20120807
  5. ADVATE 250 IU INJEKTIOKUIVA-AINE JA LIUOTIN, LIUOSTA VARTEN [Suspect]
     Route: 042
     Dates: start: 20121022
  6. ADVATE 250 IU INJEKTIOKUIVA-AINE JA LIUOTIN, LIUOSTA VARTEN [Suspect]
     Route: 042
     Dates: start: 201303

REACTIONS (5)
  - Joint swelling [Unknown]
  - Factor VIII inhibition [Unknown]
  - Drug level below therapeutic [Unknown]
  - Catheter site haemorrhage [Unknown]
  - Haemorrhage [Unknown]
